FAERS Safety Report 9083989 (Version 1)
Quarter: 2013Q1

REPORT INFORMATION
  Report Type: Report from Study
  Country: IT (occurrence: IT)
  Receive Date: 20130130
  Receipt Date: 20130130
  Transmission Date: 20140127
  Serious: Yes (Death)
  Sender: FDA-Public Use
  Company Number: IT-BAXTER-2013BAX003659

PATIENT
  Sex: 0

DRUGS (3)
  1. ENDOXAN BAXTER [Suspect]
     Indication: ACUTE LYMPHOCYTIC LEUKAEMIA
     Dosage: AS THE INDUCTION CYCLE
     Route: 042
  2. CLOFARABINE [Suspect]
     Indication: ACUTE LYMPHOCYTIC LEUKAEMIA
     Route: 042
  3. ETOPOSIDE [Suspect]
     Indication: ACUTE LYMPHOCYTIC LEUKAEMIA
     Route: 042

REACTIONS (1)
  - Bacterial infection [Fatal]
